FAERS Safety Report 10184795 (Version 2)
Quarter: 2014Q2

REPORT INFORMATION
  Report Type: Spontaneous
  Country: GB (occurrence: GB)
  Receive Date: 20140521
  Receipt Date: 20140521
  Transmission Date: 20141212
  Serious: Yes (Other)
  Sender: FDA-Public Use
  Company Number: PHFR2014GB002555

PATIENT
  Age: 45 Year
  Sex: Male

DRUGS (8)
  1. CLOZARIL (CLOZAPINE) [Suspect]
     Indication: PSYCHOTIC DISORDER
     Dosage: UNK
     Route: 048
     Dates: start: 20031115
  2. CLOZARIL (CLOZAPINE) [Suspect]
     Dosage: 3.5 MG, UNK
     Route: 048
     Dates: start: 20140327
  3. CLOZARIL (CLOZAPINE) [Suspect]
     Dosage: UNK
     Route: 048
     Dates: start: 20140328
  4. CLOZARIL (CLOZAPINE) [Suspect]
     Dosage: UNK
     Route: 048
     Dates: start: 20140330
  5. CLOZARIL (CLOZAPINE) [Suspect]
     Dosage: 100 MG MORNING AND 325 MG NOCTE
     Route: 048
  6. AMISULPRIDE [Concomitant]
     Indication: PSYCHOTIC DISORDER
     Dosage: 200 MG, BID
     Route: 048
  7. CITALOPRAM [Concomitant]
     Indication: DEPRESSION
     Dosage: 40 MG, DAILY
     Route: 048
  8. SODIUM VALPROATE [Concomitant]
     Indication: AFFECTIVE DISORDER
     Dosage: 500 MG, BID
     Route: 048

REACTIONS (4)
  - Suicidal ideation [Unknown]
  - Psychiatric symptom [Unknown]
  - Blood prolactin increased [Unknown]
  - Overdose [Recovering/Resolving]
